FAERS Safety Report 24229073 (Version 1)
Quarter: 2024Q3

REPORT INFORMATION
  Report Type: Spontaneous
  Country: US (occurrence: None)
  Receive Date: 20240819
  Receipt Date: 20240819
  Transmission Date: 20241016
  Serious: Yes (Hospitalization, Other)
  Sender: Public
  Company Number: None

PATIENT
  Age: 64 Year
  Sex: Male
  Weight: 78.3 kg

DRUGS (2)
  1. VENOFER [Suspect]
     Active Substance: IRON SUCROSE
     Indication: Iron deficiency anaemia
     Dosage: 100 MG ONCE INTRAVENOUS DRIP?
     Route: 041
     Dates: start: 20240726, end: 20240814
  2. Vitamin D (Calcitriol) Oral 0.5 mcg [Concomitant]
     Dates: start: 20240726

REACTIONS (7)
  - Blood pressure increased [None]
  - Pruritus [None]
  - Rash erythematous [None]
  - Eye swelling [None]
  - Swollen tongue [None]
  - Wheezing [None]
  - Drug hypersensitivity [None]

NARRATIVE: CASE EVENT DATE: 20240814
